APPROVED DRUG PRODUCT: TRAMADOL HYDROCHLORIDE
Active Ingredient: TRAMADOL HYDROCHLORIDE
Strength: 50MG
Dosage Form/Route: TABLET;ORAL
Application: A090404 | Product #001 | TE Code: AB
Applicant: SENORES PHARMACEUTICALS INC
Approved: Jan 31, 2011 | RLD: No | RS: No | Type: RX